APPROVED DRUG PRODUCT: METOCLOPRAMIDE HYDROCHLORIDE
Active Ingredient: METOCLOPRAMIDE HYDROCHLORIDE
Strength: EQ 10MG BASE
Dosage Form/Route: TABLET;ORAL
Application: A072215 | Product #001 | TE Code: AB
Applicant: AIPING PHARMACEUTICAL INC
Approved: Jan 30, 1990 | RLD: No | RS: No | Type: RX